FAERS Safety Report 7234919-3 (Version None)
Quarter: 2010Q4

REPORT INFORMATION
  Report Type: 
  Country: None (occurrence: None)
  Receive Date: 20101130
  Receipt Date: 20090824
  Transmission Date: 20110411
  Serious: Yes (Hospitalization)
  Sender: FDA-Public Use
  Company Number: 2009-194926-NL

PATIENT
  Age: 21 Year
  Sex: Female
  Weight: 114.3065 kg

DRUGS (4)
  1. NUVARING [Suspect]
     Indication: CONTRACEPTION
     Dosage: VAG
     Route: 067
     Dates: start: 20080601, end: 20080901
  2. WELLBUTRIN [Concomitant]
  3. MULTI-VITAMINS [Concomitant]
  4. ZOLOFT [Concomitant]

REACTIONS (1)
  - DEEP VEIN THROMBOSIS [None]
